FAERS Safety Report 22054226 (Version 1)
Quarter: 2023Q1

REPORT INFORMATION
  Report Type: Spontaneous
  Country: US (occurrence: US)
  Receive Date: 20230302
  Receipt Date: 20230302
  Transmission Date: 20230418
  Serious: No
  Sender: FDA-Public Use
  Company Number: US-NOVOPROD-1009261

PATIENT
  Sex: Female

DRUGS (1)
  1. SAXENDA [Suspect]
     Active Substance: LIRAGLUTIDE
     Indication: Weight control
     Dosage: 3.0 MG
     Route: 058
     Dates: start: 20220816

REACTIONS (2)
  - Weight fluctuation [Not Recovered/Not Resolved]
  - Weight loss poor [Not Recovered/Not Resolved]
